FAERS Safety Report 23606775 (Version 1)
Quarter: 2024Q1

REPORT INFORMATION
  Report Type: Spontaneous
  Country: US (occurrence: US)
  Receive Date: 20240307
  Receipt Date: 20240307
  Transmission Date: 20240410
  Serious: Yes (Other)
  Sender: FDA-Public Use
  Company Number: US-ABBVIE-5664607

PATIENT
  Age: 42 Year
  Sex: Female
  Weight: 72 kg

DRUGS (2)
  1. LILETTA [Suspect]
     Active Substance: LEVONORGESTREL
     Indication: Menstrual disorder
     Dosage: TIME INTERVAL: AS NECESSARY: STRENGTH 52 MG
     Route: 015
     Dates: start: 2019, end: 202306
  2. LILETTA [Suspect]
     Active Substance: LEVONORGESTREL
     Indication: Polyp
     Dosage: TIME INTERVAL: AS NECESSARY: STRENGTH 52 MG
     Route: 015
     Dates: start: 202306, end: 20240227

REACTIONS (2)
  - Uterine haemorrhage [Not Recovered/Not Resolved]
  - Pelvic pain [Recovered/Resolved]

NARRATIVE: CASE EVENT DATE: 20240101
